FAERS Safety Report 5237427-4 (Version None)
Quarter: 2007Q1

REPORT INFORMATION
  Report Type: 
  Country: None (occurrence: None)
  Receive Date: 20070213
  Receipt Date: 20070205
  Transmission Date: 20070707
  Serious: Yes (Hospitalization)
  Sender: FDA-Public Use
  Company Number: GR-ABBOTT-07P-066-0355437-00

PATIENT
  Age: 65 Year
  Sex: Male

DRUGS (1)
  1. TARKA [Suspect]
     Indication: HYPERTENSION
     Route: 048
     Dates: start: 20061202, end: 20061202

REACTIONS (3)
  - BRADYCARDIA [None]
  - DIZZINESS [None]
  - SYNCOPE [None]
